FAERS Safety Report 6862691-5 (Version None)
Quarter: 2010Q3

REPORT INFORMATION
  Report Type: 
  Country: None (occurrence: None)
  Receive Date: 20100716
  Receipt Date: 20100712
  Transmission Date: 20110219
  Serious: Yes (Life-Threatening)
  Sender: FDA-Public Use
  Company Number: 2010SP036374

PATIENT
  Age: 79 Year
  Sex: Male

DRUGS (10)
  1. TEMODAL [Suspect]
     Indication: MALIGNANT MELANOMA
     Dosage: 200 MG/M2;QD;PO, 100 MG/M2;QD;PO, 150 MG/M2;QD;PO
     Route: 048
     Dates: start: 20090713, end: 20090718
  2. TEMODAL [Suspect]
     Indication: MALIGNANT MELANOMA
     Dosage: 200 MG/M2;QD;PO, 100 MG/M2;QD;PO, 150 MG/M2;QD;PO
     Route: 048
     Dates: start: 20090422
  3. TEMODAL [Suspect]
     Indication: MALIGNANT MELANOMA
     Dosage: 200 MG/M2;QD;PO, 100 MG/M2;QD;PO, 150 MG/M2;QD;PO
     Route: 048
     Dates: start: 20090615
  4. CORTANCYL [Concomitant]
  5. NEURONTIN [Concomitant]
  6. SOTALEX [Concomitant]
  7. NEXIUM [Concomitant]
  8. LASIX [Concomitant]
  9. LOVENOX [Concomitant]
  10. XANAX [Concomitant]

REACTIONS (4)
  - FEBRILE BONE MARROW APLASIA [None]
  - HAEMOGLOBIN DECREASED [None]
  - PLATELET COUNT DECREASED [None]
  - WHITE BLOOD CELL COUNT DECREASED [None]
